FAERS Safety Report 8115457-2 (Version None)
Quarter: 2012Q1

REPORT INFORMATION
  Report Type: 
  Country: None (occurrence: None)
  Receive Date: 20120118
  Receipt Date: 20120103
  Transmission Date: 20120608
  Serious: Yes (Death, Hospitalization)
  Sender: FDA-Public Use
  Company Number: 2011PROUSA00871

PATIENT
  Age: 76 Year
  Sex: Male

DRUGS (1)
  1. PROVENGE [Suspect]
     Indication: PROSTATE CANCER METASTATIC
     Dosage: 250 ML, SINGLE, INTRAVENOUS
     Route: 042
     Dates: start: 20111107, end: 20111107

REACTIONS (3)
  - URINARY TRACT INFECTION [None]
  - FLUID OVERLOAD [None]
  - CHEST PAIN [None]
